FAERS Safety Report 16188993 (Version 1)
Quarter: 2019Q2

REPORT INFORMATION
  Report Type: Spontaneous
  Country: US (occurrence: US)
  Receive Date: 20190411
  Receipt Date: 20190411
  Transmission Date: 20190711
  Serious: Yes (Other)
  Sender: FDA-Public Use
  Company Number: None

PATIENT
  Age: 88 Year
  Sex: Male
  Weight: 75.6 kg

DRUGS (14)
  1. VITAMIN B12 [Concomitant]
     Active Substance: CYANOCOBALAMIN
  2. VIAGRA [Concomitant]
     Active Substance: SILDENAFIL CITRATE
  3. LOSARTAN. [Concomitant]
     Active Substance: LOSARTAN
  4. ASPIRIN. [Concomitant]
     Active Substance: ASPIRIN
  5. VALACYCLOVIR [Concomitant]
     Active Substance: VALACYCLOVIR HYDROCHLORIDE
  6. ELIQUIS [Concomitant]
     Active Substance: APIXABAN
  7. AMLODIPINE [Concomitant]
     Active Substance: AMLODIPINE BESYLATE
  8. COLCHICINE. [Concomitant]
     Active Substance: COLCHICINE
  9. SPRYCEL [Suspect]
     Active Substance: DASATINIB
     Indication: PLASMA CELL MYELOMA
     Route: 048
     Dates: start: 20180625
  10. TAMSULOSIN [Concomitant]
     Active Substance: TAMSULOSIN
  11. VITAMIN D3 [Concomitant]
     Active Substance: CHOLECALCIFEROL
  12. TRAMADOL. [Concomitant]
     Active Substance: TRAMADOL
  13. REVLIMID [Concomitant]
     Active Substance: LENALIDOMIDE
  14. ATORVASTATIN [Concomitant]
     Active Substance: ATORVASTATIN

REACTIONS (2)
  - Diarrhoea [None]
  - Thrombosis [None]
